FAERS Safety Report 4287448-3 (Version None)
Quarter: 2004Q1

REPORT INFORMATION
  Report Type: 
  Country: None (occurrence: None)
  Receive Date: 20040205
  Receipt Date: 20040129
  Transmission Date: 20041129
  Serious: Yes (Other)
  Sender: FDA-Public Use
  Company Number: US-JNJFOC-20040200164

PATIENT
  Age: 77 Year
  Sex: Male

DRUGS (1)
  1. RISPERDAL [Suspect]
     Indication: SEDATION
     Dosage: 0.25 MG, 1 IN 1 DAY, ORAL
     Route: 048
     Dates: start: 20031101

REACTIONS (1)
  - CARDIAC FAILURE CONGESTIVE [None]
